FAERS Safety Report 12613527 (Version 1)
Quarter: 2016Q3

REPORT INFORMATION
  Report Type: Spontaneous
  Country: JP (occurrence: JP)
  Receive Date: 20160802
  Receipt Date: 20160802
  Transmission Date: 20161109
  Serious: Yes (Other)
  Sender: FDA-Public Use
  Company Number: JP-SUN PHARMACEUTICAL INDUSTRIES LTD-2016RR-121275

PATIENT
  Age: 39 Year
  Sex: Female
  Weight: 60 kg

DRUGS (20)
  1. AMOXAPINE. [Suspect]
     Active Substance: AMOXAPINE
     Indication: DEPRESSION
     Dosage: 7 MG, DAILY
     Route: 065
  2. PAROXETINE. [Suspect]
     Active Substance: PAROXETINE
     Indication: DEPRESSION
     Dosage: 15 MG, DAILY
     Route: 065
  3. BIPERIDEN HYDROCHLORIDE [Suspect]
     Active Substance: BIPERIDEN HYDROCHLORIDE
     Indication: DEPRESSION
     Dosage: 2 MG, DAILY
     Route: 065
  4. CHLORPROMAZINE HYDROCHLORIDE, PROMETHAZINE HYDROCHLORIDE, PHENOBARBITA [Suspect]
     Active Substance: CHLORPROMAZINE HYDROCHLORIDE\PHENOBARBITAL\PROMETHAZINE HYDROCHLORIDE
     Indication: DEPRESSION
     Dosage: 3 CAPSULES
     Route: 065
  5. SCOPOLAMINE BUTYLBROMIDE [Concomitant]
     Active Substance: SCOPOLAMINE
     Indication: TOOTHACHE
     Dosage: UNK
     Route: 065
  6. LEVOMEPROMAZINE MALEATE [Concomitant]
     Active Substance: LEVOMEPROMAZINE MALEATE
     Indication: INSOMNIA
     Dosage: 50 MG, SINGLE
     Route: 065
  7. CHLORPROMAZINE HYDROCHLORIDE, PROMETHAZINE HYDROCHLORIDE, PHENOBARBITA [Suspect]
     Active Substance: CHLORPROMAZINE HYDROCHLORIDE\PHENOBARBITAL\PROMETHAZINE HYDROCHLORIDE
     Indication: DEPRESSION
     Dosage: 3 CAPSULES
     Route: 065
  8. PHENOBARBITAL CALCIUM. [Concomitant]
     Active Substance: PHENOBARBITAL CALCIUM
     Indication: INSOMNIA
     Dosage: 100 MG, SINGLE
     Route: 065
  9. HALOXAZOLAM [Suspect]
     Active Substance: HALOXAZOLAM
     Indication: DEPRESSION
     Dosage: 10 MG, DAILY
     Route: 065
  10. ESZOPICLONE. [Concomitant]
     Active Substance: ESZOPICLONE
     Indication: INSOMNIA
     Dosage: 3 MG, SINGLE
     Route: 065
  11. MIRTAZAPINE. [Suspect]
     Active Substance: MIRTAZAPINE
     Indication: DEPRESSION
     Dosage: 15 MG, DAILY
     Route: 065
  12. FLUNITRAZEPAM [Suspect]
     Active Substance: FLUNITRAZEPAM
     Indication: DEPRESSION
     Dosage: 2 MG, DAILY
     Route: 065
  13. LEVOMEPROMAZINE [Suspect]
     Active Substance: LEVOMEPROMAZINE
     Indication: DEPRESSION
     Dosage: 50 MG, DAILY
     Route: 065
  14. PENTAZOCINE [Concomitant]
     Active Substance: PENTAZOCINE
     Indication: TOOTHACHE
     Dosage: UNK
     Route: 065
  15. ESTAZOLAM. [Suspect]
     Active Substance: ESTAZOLAM
     Indication: DEPRESSION
     Dosage: 2 MG, DAILY
     Route: 065
  16. TRIAZOLAM. [Suspect]
     Active Substance: TRIAZOLAM
     Indication: DEPRESSION
     Dosage: 0.5 MG, DAILY
     Route: 065
  17. RILMAZAFONE HYDROCHLORIDE HYDRATE [Suspect]
     Active Substance: RILMAZAFONE HYDROCHLORIDE
     Indication: DEPRESSION
     Dosage: 2 MG, DAILY
     Route: 065
  18. BROTIZOLAM [Suspect]
     Active Substance: BROTIZOLAM
     Indication: DEPRESSION
     Dosage: 2 MG, DAILY
     Route: 065
  19. NITRAZEPAM [Suspect]
     Active Substance: NITRAZEPAM
     Indication: DEPRESSION
     Dosage: 10 MG, DAILY
     Route: 065
  20. LOXOPROFEN NATRIUM [Concomitant]
     Indication: TOOTHACHE
     Dosage: HIGH-DOSE
     Route: 065

REACTIONS (6)
  - Gamma-glutamyltransferase increased [Unknown]
  - Blood alkaline phosphatase increased [Unknown]
  - Depression [Unknown]
  - Electrocardiogram QT prolonged [Unknown]
  - Suicide attempt [Unknown]
  - Blood cholinesterase increased [Unknown]
